FAERS Safety Report 6298484-X (Version None)
Quarter: 2009Q3

REPORT INFORMATION
  Report Type: 
  Country: None (occurrence: None)
  Receive Date: 20090724
  Receipt Date: 20090520
  Transmission Date: 20100115
  Serious: Yes (Other)
  Sender: FDA-Public Use
  Company Number: 2008BI005931

PATIENT
  Age: 50 Year
  Sex: Female

DRUGS (4)
  1. TYSABRI [Suspect]
     Indication: MULTIPLE SCLEROSIS
     Dosage: 300 MG; QM ; IV
     Route: 042
     Dates: start: 20070925
  2. NAPROXEN [Concomitant]
  3. KLONOPIN [Concomitant]
  4. CYMBALTA [Concomitant]

REACTIONS (5)
  - ALANINE AMINOTRANSFERASE INCREASED [None]
  - ARTHRALGIA [None]
  - BLOOD BILIRUBIN INCREASED [None]
  - SALMONELLOSIS [None]
  - URINARY TRACT INFECTION [None]
